FAERS Safety Report 5631138-9 (Version None)
Quarter: 2008Q1

REPORT INFORMATION
  Report Type: 
  Country: None (occurrence: None)
  Receive Date: 20080219
  Receipt Date: 20080211
  Transmission Date: 20080703
  Serious: Yes (Hospitalization)
  Sender: FDA-Public Use
  Company Number: SE-BOEHRINGER INGELHEIM GMBH, GERMANY-2008-SW-00051SW

PATIENT
  Sex: Male

DRUGS (4)
  1. PERSANTINE [Suspect]
     Indication: TRANSIENT ISCHAEMIC ATTACK
     Dates: start: 20080205, end: 20080207
  2. ASPIRIN [Concomitant]
  3. VITAMINS [Concomitant]
  4. CALCIUM [Concomitant]

REACTIONS (9)
  - APHASIA [None]
  - CEREBRAL HAEMORRHAGE [None]
  - DISORIENTATION [None]
  - DIZZINESS [None]
  - FEELING ABNORMAL [None]
  - HYPOTENSION [None]
  - MALAISE [None]
  - PALLOR [None]
  - SYNCOPE [None]
